FAERS Safety Report 18481793 (Version 1)
Quarter: 2020Q4

REPORT INFORMATION
  Report Type: Spontaneous
  Country: US (occurrence: US)
  Receive Date: 20201109
  Receipt Date: 20201109
  Transmission Date: 20210114
  Serious: No
  Sender: FDA-Public Use
  Company Number: US-PFIZER INC-2020435168

PATIENT
  Age: 64 Year
  Sex: Female

DRUGS (1)
  1. XELJANZ XR [Suspect]
     Active Substance: TOFACITINIB CITRATE
     Dosage: 11 MG
     Dates: start: 20201021, end: 20201105

REACTIONS (7)
  - Dyspnoea [Unknown]
  - Tremor [Unknown]
  - Middle insomnia [Unknown]
  - Crying [Unknown]
  - Heart rate increased [Unknown]
  - Nausea [Unknown]
  - Upper respiratory tract congestion [Unknown]
